FAERS Safety Report 15578472 (Version 2)
Quarter: 2018Q4

REPORT INFORMATION
  Report Type: Spontaneous
  Country: US (occurrence: US)
  Receive Date: 20181102
  Receipt Date: 20181222
  Transmission Date: 20190205
  Serious: No
  Sender: FDA-Public Use
  Company Number: PHHY2018US142101

PATIENT
  Sex: Female

DRUGS (1)
  1. GENTEAL MILD TO MODERATE [Suspect]
     Active Substance: HYPROMELLOSE 2910 (4000 MPA.S)
     Indication: PRODUCT USED FOR UNKNOWN INDICATION
     Route: 047
     Dates: start: 20181022, end: 20181029

REACTIONS (4)
  - Eye pruritus [Recovering/Resolving]
  - Ocular discomfort [Recovering/Resolving]
  - Eye pain [Recovering/Resolving]
  - Drug ineffective [Unknown]

NARRATIVE: CASE EVENT DATE: 20181022
